FAERS Safety Report 10738575 (Version 1)
Quarter: 2015Q1

REPORT INFORMATION
  Report Type: Spontaneous
  Country: US (occurrence: None)
  Receive Date: 20150122
  Receipt Date: 20150122
  Transmission Date: 20150721
  Serious: No
  Sender: FDA-Public Use
  Company Number: None

PATIENT
  Age: 60 Year
  Sex: Male
  Weight: 81.65 kg

DRUGS (14)
  1. ASPIRIN. [Concomitant]
     Active Substance: ASPIRIN
  2. NICOTINE. [Concomitant]
     Active Substance: NICOTINE
  3. BENZONATE [Concomitant]
     Active Substance: BENZONATATE
  4. PANTOPROZOLE [Concomitant]
  5. LEVOFLOXACIN. [Suspect]
     Active Substance: LEVOFLOXACIN
     Indication: PNEUMONIA
     Route: 042
     Dates: start: 20150114, end: 20150120
  6. LORAZEPAM. [Concomitant]
     Active Substance: LORAZEPAM
  7. DILTIAZEM [Concomitant]
     Active Substance: DILTIAZEM
  8. IPATROPIUM/ALBUTEROL [Concomitant]
  9. VANCOMYCIN [Concomitant]
     Active Substance: VANCOMYCIN
  10. WARFARIN [Concomitant]
     Active Substance: WARFARIN
  11. AMIODARONE [Concomitant]
     Active Substance: AMIODARONE
  12. LOVENOX [Concomitant]
     Active Substance: ENOXAPARIN SODIUM
  13. NEBULIZER [Concomitant]
     Active Substance: UNSPECIFIED INGREDIENT
  14. TRAMADOL [Concomitant]
     Active Substance: TRAMADOL

REACTIONS (1)
  - Tendon disorder [None]

NARRATIVE: CASE EVENT DATE: 20150120
